FAERS Safety Report 9156585 (Version 1)
Quarter: 2013Q1

REPORT INFORMATION
  Report Type: Spontaneous
  Country: US (occurrence: None)
  Receive Date: 20130208
  Receipt Date: 20130208
  Transmission Date: 20140127
  Serious: Yes (Other)
  Sender: FDA-Public Use
  Company Number: 1590745

PATIENT
  Age: 30 Year
  Sex: Male

DRUGS (4)
  1. CYTARABINE [Suspect]
     Indication: HEPATOSPLENIC T-CELL LYMPHOMA
  2. ETOPOSIDE [Suspect]
     Indication: HEPATOSPLENIC T-CELL LYMPHOMA
  3. ADRIAMYCIN [Suspect]
     Indication: HEPATOSPLENIC T-CELL LYMPHOMA
  4. (CYCLOSPORIN A) [Concomitant]

REACTIONS (5)
  - Pancytopenia [None]
  - Serum ferritin increased [None]
  - Systemic candida [None]
  - Mycotic aneurysm [None]
  - Septic shock [None]
